FAERS Safety Report 11599804 (Version 1)
Quarter: 2015Q3

REPORT INFORMATION
  Report Type: Spontaneous
  Country: US (occurrence: US)
  Receive Date: 20150916
  Receipt Date: 20150916
  Transmission Date: 20151125
  Serious: No
  Sender: FDA-Public Use
  Company Number: US-ELI_LILLY_AND_COMPANY-US200604002994

PATIENT
  Age: 77 Year
  Sex: Female

DRUGS (2)
  1. FORTEO [Suspect]
     Active Substance: TERIPARATIDE
     Indication: OSTEOPOROSIS
     Dosage: UNK, UNKNOWN
     Dates: start: 20060412, end: 20060420
  2. FORTEO [Suspect]
     Active Substance: TERIPARATIDE
     Dosage: UNK, UNK
     Dates: start: 200607

REACTIONS (5)
  - Blister [Not Recovered/Not Resolved]
  - Injection site bruising [Recovering/Resolving]
  - Dermatitis contact [Not Recovered/Not Resolved]
  - Eye irritation [Not Recovered/Not Resolved]
  - Rash morbilliform [Recovered/Resolved]

NARRATIVE: CASE EVENT DATE: 20060415
